FAERS Safety Report 10476831 (Version 2)
Quarter: 2014Q3

REPORT INFORMATION
  Report Type: Spontaneous
  Country: CH (occurrence: CH)
  Receive Date: 20140926
  Receipt Date: 20140926
  Transmission Date: 20150326
  Serious: Yes (Hospitalization, Other)
  Sender: FDA-Public Use
  Company Number: CH-NOVOPROD-421650

PATIENT
  Age: 67 Year
  Sex: Male
  Weight: 103 kg

DRUGS (15)
  1. ASPIRIN CARDIO [Concomitant]
     Active Substance: ASPIRIN
     Dosage: 100 MG, QD (IN THE MORNING)
     Route: 048
  2. CO-LISINOPRIL [Concomitant]
     Active Substance: HYDROCHLOROTHIAZIDE\LISINOPRIL
     Dosage: 0.50 DF, QD (10/12.5 MG, IN THE MORNING)
     Route: 048
  3. PANTOPRAZOLE [Concomitant]
     Active Substance: PANTOPRAZOLE SODIUM
     Dosage: 40 MG, BID (MORING AND EVENING)
     Route: 048
  4. ZOLPIDEM [Concomitant]
     Active Substance: ZOLPIDEM\ZOLPIDEM TARTRATE
     Dosage: 20 MG, QD (BEFORE NIGHT)
     Route: 048
  5. DIAMICRON [Concomitant]
     Active Substance: GLICLAZIDE
     Dosage: 120 MG, QD (MORNING)
     Route: 048
  6. SEQUASE [Concomitant]
     Active Substance: QUETIAPINE FUMARATE
     Dosage: 50 MG, QD (EVENING)
     Route: 048
  7. VICTOZA [Suspect]
     Active Substance: LIRAGLUTIDE
     Dosage: 1.8 MG, QD
     Route: 058
     Dates: start: 20131209
  8. ATORVASTATIN [Concomitant]
     Active Substance: ATORVASTATIN
     Dosage: 80 MG, QD (IN THE MORNING)
     Route: 048
  9. VICTOZA [Suspect]
     Active Substance: LIRAGLUTIDE
     Indication: TYPE 2 DIABETES MELLITUS
     Dosage: 1.20 MG, QD
     Route: 058
     Dates: start: 20110712, end: 20121129
  10. TAMSULOSIN [Concomitant]
     Active Substance: TAMSULOSIN
     Dosage: 0.4 MG, QD (MORNING)
     Route: 048
  11. NOVORAPID [Concomitant]
     Active Substance: INSULIN ASPART
     Dosage: (ACCORDING TO SCHEME, IMMEDIATELY BEFORE, DURING OR IMMEDIATELY AFTER THE MEAL)
     Route: 058
  12. PAROXETIN                          /00830801/ [Concomitant]
     Dosage: 20 MG, QD (IN THE MORNING)
     Route: 048
  13. CYMBALTA [Concomitant]
     Active Substance: DULOXETINE HYDROCHLORIDE
     Dosage: 60 MG, QD (IN THE MORNING)
     Route: 048
  14. TRESIBA FLEXTOUCH [Concomitant]
     Active Substance: INSULIN DEGLUDEC
     Dosage: 42 IU, QD (AT 22:00 IN THE THIGHS)
     Route: 058
  15. DIPIPERON [Concomitant]
     Active Substance: PIPAMPERONE
     Dosage: 1 DF, QD (BEFORE NIGHT, IN RESERVE UP TO 3 TABL. PER 24 H)
     Route: 048

REACTIONS (3)
  - Suicide attempt [Not Recovered/Not Resolved]
  - Depression [Not Recovered/Not Resolved]
  - Social avoidant behaviour [Not Recovered/Not Resolved]

NARRATIVE: CASE EVENT DATE: 20140313
